FAERS Safety Report 16317741 (Version 3)
Quarter: 2019Q3

REPORT INFORMATION
  Report Type: Report from Study
  Country: US (occurrence: US)
  Receive Date: 20190516
  Receipt Date: 20190826
  Transmission Date: 20191004
  Serious: Yes (Hospitalization)
  Sender: FDA-Public Use
  Company Number: US-ROCHE-2316704

PATIENT
  Age: 50 Year
  Sex: Female

DRUGS (2)
  1. OCREVUS [Suspect]
     Active Substance: OCRELIZUMAB
     Route: 042
     Dates: start: 20190806
  2. OCREVUS [Suspect]
     Active Substance: OCRELIZUMAB
     Indication: RELAPSING MULTIPLE SCLEROSIS
     Dosage: FIRST HALF DOSE?16/OCT/2018, RECEIVED SAME SUBSEQUENT DOSE
     Route: 042
     Dates: start: 20181002

REACTIONS (4)
  - Clostridium difficile infection [Unknown]
  - Cellulitis [Recovered/Resolved]
  - Lower limb fracture [Recovered/Resolved]
  - Fall [Unknown]

NARRATIVE: CASE EVENT DATE: 201903
